FAERS Safety Report 4685186-6 (Version None)
Quarter: 2005Q2

REPORT INFORMATION
  Report Type: 
  Country: None (occurrence: None)
  Receive Date: 20050607
  Receipt Date: 20050601
  Transmission Date: 20051028
  Serious: Yes (Death)
  Sender: FDA-Public Use
  Company Number: 05-06-0962

PATIENT
  Age: 56 Year
  Sex: Female

DRUGS (6)
  1. CLOZAPINE [Suspect]
     Dosage: 300-375MG QD ORAL
     Route: 048
  2. PRANDIN ^KUHN^ [Concomitant]
  3. ASPIRIN [Concomitant]
  4. CELEXA [Concomitant]
  5. DILANTIN [Concomitant]
  6. PROTONIX [Concomitant]

REACTIONS (3)
  - ARRHYTHMIA [None]
  - CARDIAC ARREST [None]
  - LOSS OF CONSCIOUSNESS [None]
